FAERS Safety Report 6264937-3 (Version None)
Quarter: 2009Q3

REPORT INFORMATION
  Report Type: 
  Country: None (occurrence: None)
  Receive Date: 20090709
  Receipt Date: 20090709
  Transmission Date: 20100115
  Serious: Yes (Life-Threatening, Hospitalization)
  Sender: FDA-Public Use
  Company Number: None

PATIENT
  Age: 70 Year
  Sex: Female
  Weight: 97.5234 kg

DRUGS (2)
  1. FLUCONAZOLE [Suspect]
     Indication: UPPER RESPIRATORY FUNGAL INFECTION
     Dosage: 1 TAB PER DAY 1 DAILY MOUTH
     Route: 048
     Dates: start: 20080828, end: 20080829
  2. FLUCONAZOLE [Suspect]
     Indication: UPPER RESPIRATORY FUNGAL INFECTION
     Dosage: 1 TAB PER DAY 1 DAILY MOUTH
     Route: 048
     Dates: start: 20080830

REACTIONS (7)
  - ABASIA [None]
  - BURNING SENSATION [None]
  - OCULAR HYPERAEMIA [None]
  - ONYCHOMADESIS [None]
  - PAIN [None]
  - PARAESTHESIA ORAL [None]
  - RASH [None]
